FAERS Safety Report 9242560 (Version 2)
Quarter: 2013Q3

REPORT INFORMATION
  Report Type: Spontaneous
  Country: US (occurrence: US)
  Receive Date: 20130419
  Receipt Date: 20130708
  Transmission Date: 20140515
  Serious: No
  Sender: FDA-Public Use
  Company Number: US-PFIZER INC-2013121090

PATIENT
  Age: 69 Year
  Sex: Male
  Weight: 92.97 kg

DRUGS (6)
  1. NORVASC [Suspect]
     Dosage: 5 MG, 1X/DAY
     Route: 048
     Dates: start: 20090331, end: 20130417
  2. NORVASC [Suspect]
     Dosage: UNK
     Dates: start: 20130516
  3. ALTACE [Suspect]
     Dosage: 10 MG, 1X/DAY (Q DAY)
     Route: 048
     Dates: start: 20081119, end: 20130517
  4. ATORVASTATIN [Concomitant]
     Indication: HYPERLIPIDAEMIA
     Dosage: UNK
  5. OMEPRAZOLE [Concomitant]
     Indication: GASTROOESOPHAGEAL REFLUX DISEASE
     Dosage: 20 MG, UNK
  6. FLUTICASONE [Concomitant]
     Dosage: UNK, AS NEEDED
     Route: 045

REACTIONS (4)
  - Eczema nummular [Not Recovered/Not Resolved]
  - Rash generalised [Recovering/Resolving]
  - Pruritus [Not Recovered/Not Resolved]
  - Rash generalised [Recovering/Resolving]
